FAERS Safety Report 12712955 (Version 2)
Quarter: 2016Q4

REPORT INFORMATION
  Report Type: Report from Study
  Country: None (occurrence: US)
  Receive Date: 20160902
  Receipt Date: 20161010
  Transmission Date: 20170207
  Serious: Yes (Other)
  Sender: FDA-Public Use
  Company Number: US-ABBVIE-16P-163-1717750-00

PATIENT
  Age: 27 Year
  Sex: Female
  Weight: 82.17 kg

DRUGS (1)
  1. LUPRON DEPOT [Suspect]
     Active Substance: LEUPROLIDE ACETATE
     Indication: ENDOMETRIOSIS
     Route: 030
     Dates: start: 20160106

REACTIONS (5)
  - Cholecystectomy [Recovered/Resolved]
  - Vaginal haemorrhage [Recovered/Resolved]
  - Menstrual disorder [Recovered/Resolved]
  - Lipoma [Recovered/Resolved]
  - Benign hepatic neoplasm [Recovered/Resolved]

NARRATIVE: CASE EVENT DATE: 201602
